FAERS Safety Report 4440951-5 (Version None)
Quarter: 2004Q3

REPORT INFORMATION
  Report Type: 
  Country: None (occurrence: None)
  Receive Date: 20040728
  Receipt Date: 20040412
  Transmission Date: 20050211
  Serious: No
  Sender: FDA-Public Use
  Company Number: USA040464651

PATIENT
  Age: 48 Year
  Sex: Male

DRUGS (1)
  1. STRATTERA [Suspect]
     Dosage: 80 MG
     Dates: start: 20040301

REACTIONS (2)
  - DYSURIA [None]
  - EJACULATION DISORDER [None]
